FAERS Safety Report 8002986-5 (Version None)
Quarter: 2011Q4

REPORT INFORMATION
  Report Type: 
  Country: None (occurrence: None)
  Receive Date: 20111222
  Receipt Date: 20110706
  Transmission Date: 20120403
  Serious: No
  Sender: FDA-Public Use
  Company Number: US-GLAXOSMITHKLINE-A0935151A

PATIENT
  Age: 75 Year
  Sex: Male

DRUGS (6)
  1. OMEPRAZOLE [Concomitant]
  2. AVODART [Suspect]
     Indication: BENIGN PROSTATIC HYPERPLASIA
     Dosage: .5MG PER DAY
     Route: 048
  3. HYTRIN [Concomitant]
  4. TERAZOSIN HCL [Concomitant]
  5. BYSTOLIC [Concomitant]
  6. ASPIRIN [Concomitant]

REACTIONS (5)
  - URTICARIA [None]
  - SCRATCH [None]
  - ECZEMA [None]
  - RASH [None]
  - DERMATITIS CONTACT [None]
